FAERS Safety Report 9759560 (Version 1)
Quarter: 2013Q4

REPORT INFORMATION
  Report Type: Spontaneous
  Country: US (occurrence: US)
  Receive Date: 20131216
  Receipt Date: 20131216
  Transmission Date: 20140711
  Serious: No
  Sender: FDA-Public Use
  Company Number: US-GILEAD-2010-0028058

PATIENT
  Sex: Female
  Weight: 95.25 kg

DRUGS (26)
  1. LETAIRIS [Suspect]
     Indication: PULMONARY ARTERIAL HYPERTENSION
     Route: 048
     Dates: start: 20090119
  2. REVATIO [Concomitant]
  3. COUMADIN [Concomitant]
  4. OXYGEN [Concomitant]
  5. ASPIRIN [Concomitant]
  6. ALDACTONE [Concomitant]
  7. ALTACE [Concomitant]
  8. COREG [Concomitant]
  9. ZOCOR [Concomitant]
  10. NIACIN [Concomitant]
  11. BUMES [Concomitant]
  12. ZOLOFT [Concomitant]
  13. PAXIL [Concomitant]
  14. AMBIEN [Concomitant]
  15. COMPAZINE [Concomitant]
  16. PYRIDIUM [Concomitant]
  17. XANAX [Concomitant]
  18. COLACE [Concomitant]
  19. PHENERGAN [Concomitant]
  20. TORADOL [Concomitant]
  21. VICODIN ES [Concomitant]
  22. ELAVIL [Concomitant]
  23. HYDROCODONE APAP [Concomitant]
  24. GABAPENTIN [Concomitant]
  25. POTASSIUM CHLORIDE [Concomitant]
  26. VITAMIN B-12 [Concomitant]

REACTIONS (1)
  - Nasal congestion [Unknown]
